FAERS Safety Report 4597074-4 (Version None)
Quarter: 2005Q1

REPORT INFORMATION
  Report Type: 
  Country: None (occurrence: None)
  Receive Date: 20050301
  Receipt Date: 20050216
  Transmission Date: 20050727
  Serious: Yes (Death, Hospitalization)
  Sender: FDA-Public Use
  Company Number: 2005034536

PATIENT
  Age: 68 Year
  Sex: Female

DRUGS (7)
  1. FLUCONAZOLE [Suspect]
     Indication: ILL-DEFINED DISORDER
     Dosage: (100 MG)
     Dates: start: 20040615
  2. CIPROFLOXACIN [Suspect]
     Indication: ILL-DEFINED DISORDER
     Dosage: 500 MG (500 MG, 1 IN 1 D), ORAL
     Route: 048
     Dates: start: 20040702, end: 20040716
  3. ASPARAGINASE (ASPARAGINASE) [Suspect]
     Indication: ACUTE LYMPHOCYTIC LEUKAEMIA
     Dosage: (9000 I.U. CYCLICAL), INTRAVENOUS
     Route: 042
     Dates: start: 20040705, end: 20040713
  4. DAUNORUBICIN HCL [Concomitant]
  5. ONDANSETRON HCL [Concomitant]
  6. PREDNISONE [Concomitant]
  7. VINCRISTINE [Concomitant]

REACTIONS (8)
  - ACUTE LYMPHOCYTIC LEUKAEMIA [None]
  - ATRIAL FIBRILLATION [None]
  - ENCEPHALOPATHY [None]
  - HEPATIC FAILURE [None]
  - INAPPROPRIATE ANTIDIURETIC HORMONE SECRETION [None]
  - LIVER DISORDER [None]
  - RENAL FAILURE [None]
  - SEPSIS [None]
